FAERS Safety Report 25275013 (Version 1)
Quarter: 2025Q2

REPORT INFORMATION
  Report Type: Report from Study
  Country: KR (occurrence: KR)
  Receive Date: 20250506
  Receipt Date: 20250506
  Transmission Date: 20250717
  Serious: Yes (Death, Other)
  Sender: GILEAD
  Company Number: KR-GILEAD-2025-0710347

PATIENT
  Sex: Female

DRUGS (2)
  1. SACITUZUMAB GOVITECAN-HZIY [Suspect]
     Active Substance: SACITUZUMAB GOVITECAN-HZIY
     Indication: Breast cancer
     Route: 042
     Dates: start: 20250327, end: 20250327
  2. SACITUZUMAB GOVITECAN-HZIY [Suspect]
     Active Substance: SACITUZUMAB GOVITECAN-HZIY
     Route: 042
     Dates: start: 20250408, end: 20250408

REACTIONS (2)
  - Death [Fatal]
  - Inappropriate schedule of product administration [Unknown]

NARRATIVE: CASE EVENT DATE: 20250501
